FAERS Safety Report 5848276-8 (Version None)
Quarter: 2008Q3

REPORT INFORMATION
  Report Type: 
  Country: None (occurrence: None)
  Receive Date: 20080814
  Receipt Date: 20080814
  Transmission Date: 20090109
  Serious: Yes (Hospitalization)
  Sender: FDA-Public Use
  Company Number: None

PATIENT
  Sex: Male
  Weight: 99 kg

DRUGS (1)
  1. TEMOZOLOMIDE [Suspect]
     Dosage: 3150 MG

REACTIONS (1)
  - PLATELET COUNT DECREASED [None]
